FAERS Safety Report 5153811-1 (Version None)
Quarter: 2006Q4

REPORT INFORMATION
  Report Type: 
  Country: None (occurrence: None)
  Receive Date: 20061120
  Receipt Date: 20061106
  Transmission Date: 20070319
  Serious: Yes (Death, Life-Threatening, Hospitalization)
  Sender: FDA-Public Use
  Company Number: FR-JNJFOC-20060202167

PATIENT
  Sex: Male

DRUGS (4)
  1. CONTRAMAL [Suspect]
     Indication: PAIN
     Route: 048
  2. PRIMPERAN TAB [Concomitant]
     Indication: GASTROINTESTINAL DISORDER
     Route: 065
  3. TRIATEC [Concomitant]
     Indication: HYPERTENSION
     Route: 065
  4. TAHOR [Concomitant]
     Indication: HYPERCHOLESTEROLAEMIA
     Route: 065

REACTIONS (3)
  - HYPOVOLAEMIC SHOCK [None]
  - INTESTINAL ISCHAEMIA [None]
  - MULTI-ORGAN FAILURE [None]
